FAERS Safety Report 12465076 (Version 1)
Quarter: 2016Q2

REPORT INFORMATION
  Report Type: Spontaneous
  Country: NO (occurrence: NO)
  Receive Date: 20160614
  Receipt Date: 20160614
  Transmission Date: 20160815
  Serious: Yes (Hospitalization, Disabling, Other)
  Sender: FDA-Public Use
  Company Number: NO-PFIZER INC-2013188847

PATIENT
  Age: 19 Year
  Sex: Female

DRUGS (3)
  1. SOMAC [Suspect]
     Active Substance: PANTOPRAZOLE SODIUM
     Indication: GASTRITIS
     Dosage: 40 MG, 1X/DAY
     Route: 048
     Dates: start: 20130505, end: 20160522
  2. SOMAC [Suspect]
     Active Substance: PANTOPRAZOLE SODIUM
     Indication: DYSPEPSIA
  3. MERCILON 28 [Concomitant]
     Active Substance: DESOGESTREL\ETHINYL ESTRADIOL
     Dosage: UNK

REACTIONS (6)
  - Depression [Unknown]
  - Toxic epidermal necrolysis [Recovered/Resolved with Sequelae]
  - Erythema multiforme [Not Recovered/Not Resolved]
  - Tooth abscess [Unknown]
  - Gingivitis [Unknown]
  - Anorexia nervosa [Unknown]

NARRATIVE: CASE EVENT DATE: 20130519
